FAERS Safety Report 12226577 (Version 2)
Quarter: 2016Q2

REPORT INFORMATION
  Report Type: Spontaneous
  Country: US (occurrence: US)
  Receive Date: 20160331
  Receipt Date: 20160523
  Transmission Date: 20160815
  Serious: No
  Sender: FDA-Public Use
  Company Number: US-BIODELIVERY SCIENCES INTERNATIONAL, INC.-US-2015BDS000191

PATIENT

DRUGS (1)
  1. BUNAVAIL [Suspect]
     Active Substance: BUPRENORPHINE HYDROCHLORIDE\NALOXONE HYDROCHLORIDE DIHYDRATE
     Indication: DRUG DEPENDENCE
     Dosage: 1 DF, QD
     Route: 002
     Dates: start: 201506, end: 201509

REACTIONS (4)
  - Insomnia [None]
  - Nasal congestion [Not Recovered/Not Resolved]
  - Asthenia [None]
  - Rhinorrhoea [None]

NARRATIVE: CASE EVENT DATE: 201508
